FAERS Safety Report 23992701 (Version 1)
Quarter: 2024Q2

REPORT INFORMATION
  Report Type: Spontaneous
  Country: US (occurrence: US)
  Receive Date: 20240620
  Receipt Date: 20240620
  Transmission Date: 20240716
  Serious: No
  Sender: FDA-Public Use
  Company Number: US-IBSA PHARMA INC.-2024IBS000012

PATIENT

DRUGS (4)
  1. LIDOCAINE [Suspect]
     Active Substance: LIDOCAINE
     Indication: Arthritis
     Dosage: 1 PATCH AS NEEDED
     Route: 061
     Dates: start: 20230912
  2. LIDOCAINE [Suspect]
     Active Substance: LIDOCAINE
     Indication: Osteoporosis
  3. LIDOCAINE [Suspect]
     Active Substance: LIDOCAINE
     Indication: Back pain
  4. LIDOCAINE [Suspect]
     Active Substance: LIDOCAINE
     Indication: Arthralgia

REACTIONS (2)
  - Application site pain [Unknown]
  - Product adhesion issue [Unknown]

NARRATIVE: CASE EVENT DATE: 20240107
